FAERS Safety Report 6539161-7 (Version None)
Quarter: 2010Q1

REPORT INFORMATION
  Report Type: 
  Country: None (occurrence: None)
  Receive Date: 20100110
  Receipt Date: 20091120
  Transmission Date: 20100710
  Serious: Yes (Other)
  Sender: FDA-Public Use
  Company Number: 2009-00024

PATIENT
  Age: 61 Year
  Sex: Female
  Weight: 60 kg

DRUGS (5)
  1. SIMVASTATIN [Suspect]
     Indication: BLOOD CHOLESTEROL
     Dosage: 160 GM, 4 IN 24 HR, ORAL
     Route: 048
     Dates: start: 20080414, end: 20080416
  2. RISEDRONATE SODIUM [Concomitant]
  3. ADCAL-D3 (CALCIUM CARBONATE, CHOLECALCIFEROL CONCENTRATE POWDER  FORM, [Concomitant]
  4. LEVOTHYROXINE SODIUM [Concomitant]
  5. RISEDRONIC ACID [Concomitant]

REACTIONS (3)
  - HEADACHE [None]
  - HYPERTENSION [None]
  - NECK PAIN [None]
